FAERS Safety Report 7764908-1 (Version None)
Quarter: 2011Q3

REPORT INFORMATION
  Report Type: 
  Country: None (occurrence: None)
  Receive Date: 20110921
  Receipt Date: 20110919
  Transmission Date: 20111222
  Serious: Yes (Hospitalization, Other)
  Sender: FDA-Public Use
  Company Number: US-ROCHE-706889

PATIENT
  Age: 48 Year
  Sex: Male

DRUGS (8)
  1. COCAINE [Suspect]
     Route: 048
  2. BACLOFEN [Suspect]
     Dosage: OVERDOSE
     Route: 048
  3. ETHANOL [Suspect]
     Route: 048
  4. DIAZEPAM [Suspect]
     Dosage: OVERDOSE
     Route: 048
  5. DIAZEPAM [Suspect]
     Route: 048
  6. BACLOFEN [Suspect]
     Route: 048
  7. NEBIVOLOL HCL [Suspect]
     Route: 048
  8. NEBIVOLOL HCL [Suspect]
     Indication: HYPERTENSION
     Dosage: OVERDOSE
     Route: 048

REACTIONS (9)
  - INTENTIONAL OVERDOSE [None]
  - CARDIAC ARREST [None]
  - SUICIDE ATTEMPT [None]
  - ELECTROCARDIOGRAM QT PROLONGED [None]
  - MULTIPLE DRUG OVERDOSE INTENTIONAL [None]
  - HYPOPNOEA [None]
  - HYPOTENSION [None]
  - COMA [None]
  - BRADYCARDIA [None]
